FAERS Safety Report 20012731 (Version 1)
Quarter: 2021Q4

REPORT INFORMATION
  Report Type: Spontaneous
  Country: US (occurrence: US)
  Receive Date: 20211029
  Receipt Date: 20211029
  Transmission Date: 20220304
  Serious: No
  Sender: FDA-Public Use
  Company Number: US-PFIZER INC-202101440950

PATIENT
  Age: 72 Year
  Sex: Female
  Weight: 42.63 kg

DRUGS (3)
  1. SILDENAFIL CITRATE [Suspect]
     Active Substance: SILDENAFIL CITRATE
     Dosage: UNK
  2. TYVASO [Suspect]
     Active Substance: TREPROSTINIL
     Indication: Pulmonary arterial hypertension
     Dosage: 60-120 UG, QID, INHALATION
     Dates: start: 20111121
  3. TRACLEER [Concomitant]
     Active Substance: BOSENTAN
     Dosage: UNK

REACTIONS (4)
  - Tension headache [Unknown]
  - Lip blister [Unknown]
  - Eye pain [Unknown]
  - Eye disorder [Unknown]
